FAERS Safety Report 5368403-9 (Version None)
Quarter: 2007Q2

REPORT INFORMATION
  Report Type: 
  Country: None (occurrence: None)
  Receive Date: 20070622
  Receipt Date: 20070622
  Transmission Date: 20071010
  Serious: Yes (Hospitalization)
  Sender: FDA-Public Use
  Company Number: None

PATIENT
  Age: 76 Year
  Sex: Male
  Weight: 177 kg

DRUGS (1)
  1. ZOMETA [Suspect]
     Indication: PROSTATE CANCER
     Dosage: 4MG  EVERY 4 WEEKS  IV DRIP
     Route: 041
     Dates: start: 20070525, end: 20070525

REACTIONS (6)
  - ASTHENIA [None]
  - BLOOD CALCIUM DECREASED [None]
  - ELECTROCARDIOGRAM QT CORRECTED INTERVAL PROLONGED [None]
  - JOINT SWELLING [None]
  - PAIN IN EXTREMITY [None]
  - PITTING OEDEMA [None]
